FAERS Safety Report 11152638 (Version 4)
Quarter: 2015Q2

REPORT INFORMATION
  Report Type: Spontaneous
  Country: IT (occurrence: IT)
  Receive Date: 20150601
  Receipt Date: 20150626
  Transmission Date: 20150821
  Serious: Yes (Hospitalization)
  Sender: FDA-Public Use
  Company Number: IT-PFIZER INC-2015182766

PATIENT
  Age: 50 Year
  Sex: Female

DRUGS (3)
  1. XANAX [Interacting]
     Active Substance: ALPRAZOLAM
     Dosage: 7.5 MG, SINGLE (30 TABLETS OF 0.25MG)
     Route: 048
     Dates: start: 20150421, end: 20150421
  2. XANAX [Interacting]
     Active Substance: ALPRAZOLAM
     Dosage: UNK
     Route: 048
     Dates: start: 2015
  3. XANAX [Suspect]
     Active Substance: ALPRAZOLAM
     Indication: ANXIETY
     Dosage: 0.5 MG (0.25 MG 2 TABLETS), DAILY
     Route: 048

REACTIONS (6)
  - Drug abuse [Recovered/Resolved]
  - Toxicity to various agents [Recovered/Resolved]
  - Sopor [Recovered/Resolved]
  - Fall [Unknown]
  - Alcohol interaction [Recovered/Resolved]
  - Head injury [Unknown]

NARRATIVE: CASE EVENT DATE: 20150421
